FAERS Safety Report 19714166 (Version 1)
Quarter: 2021Q3

REPORT INFORMATION
  Report Type: Spontaneous
  Country: US (occurrence: US)
  Receive Date: 20210818
  Receipt Date: 20210818
  Transmission Date: 20211014
  Serious: Yes (Other)
  Sender: FDA-Public Use
  Company Number: None

PATIENT
  Age: 34 Year
  Sex: Female
  Weight: 78.75 kg

DRUGS (2)
  1. CIPROFLOXACIN OTIC [Suspect]
     Active Substance: CIPROFLOXACIN HYDROCHLORIDE
     Indication: EAR INFECTION
     Dates: start: 20210813, end: 20210817
  2. BABY ASPIRIN [Concomitant]
     Active Substance: ASPIRIN

REACTIONS (4)
  - Contusion [None]
  - Tendonitis [None]
  - Neuropathy peripheral [None]
  - Burning sensation [None]

NARRATIVE: CASE EVENT DATE: 20210815
